FAERS Safety Report 7249268-7 (Version None)
Quarter: 2011Q1

REPORT INFORMATION
  Report Type: 
  Country: None (occurrence: None)
  Receive Date: 20110128
  Receipt Date: 20101123
  Transmission Date: 20110831
  Serious: Yes (Other)
  Sender: FDA-Public Use
  Company Number: US-BAYER-201018734NA

PATIENT
  Sex: Male

DRUGS (11)
  1. MAGNEVIST [Suspect]
     Indication: RADICULOPATHY
  2. OPTIMARK [Suspect]
     Indication: IMAGING PROCEDURE
  3. PROHANCE [Suspect]
     Indication: IMAGING PROCEDURE
  4. MULTIHANCE [Suspect]
     Indication: IMAGING PROCEDURE
  5. OMNISCAN [Suspect]
     Indication: IMAGING PROCEDURE
  6. METOPROLOL [Concomitant]
     Dates: start: 20100901
  7. SPIRIVA [Concomitant]
  8. MAGNEVIST [Suspect]
     Indication: IMAGING PROCEDURE
     Dosage: 15 ML, ONCE
     Dates: start: 20081003, end: 20081003
  9. MAGNEVIST [Suspect]
     Indication: NUCLEAR MAGNETIC RESONANCE IMAGING
  10. THEOPHYLLINE [Concomitant]
  11. SYMBICORT [Concomitant]

REACTIONS (12)
  - FIBROSIS [None]
  - SCAR [None]
  - PRURITUS [None]
  - NEPHROGENIC SYSTEMIC FIBROSIS [None]
  - DRY SKIN [None]
  - SKIN INDURATION [None]
  - GENERAL PHYSICAL HEALTH DETERIORATION [None]
  - DEFORMITY [None]
  - RASH [None]
  - PAIN [None]
  - MOBILITY DECREASED [None]
  - ARTHRALGIA [None]
